FAERS Safety Report 9152330 (Version 3)
Quarter: 2013Q1

REPORT INFORMATION
  Report Type: Report from Study
  Country: AU (occurrence: AU)
  Receive Date: 20130308
  Receipt Date: 20130325
  Transmission Date: 20140127
  Serious: Yes (Life-Threatening, Hospitalization, Other)
  Sender: FDA-Public Use
  Company Number: AU-JNJFOC-20130215510

PATIENT
  Age: 29 Year
  Sex: Female

DRUGS (9)
  1. RISPERDAL CONSTA [Suspect]
     Indication: PSYCHOTIC DISORDER
     Dosage: THE START DATE WAS PRE-PREGNANCY AND EXPSOURE TIME IN GESTATIONAL WEEK WAS 34/40 WEEKS
     Route: 030
  2. QUETIAPINE [Suspect]
     Indication: PSYCHOTIC DISORDER
     Route: 048
  3. ESCITALOPRAM [Suspect]
     Indication: ANTIDEPRESSANT THERAPY
     Route: 048
  4. NOVORAPID [Suspect]
     Indication: GESTATIONAL DIABETES
     Route: 058
  5. PROTAPHANE [Suspect]
     Indication: GESTATIONAL DIABETES
     Route: 058
  6. OXYCONTIN [Suspect]
     Indication: ANALGESIC THERAPY
     Dosage: 20-30 MG
     Route: 048
  7. OXYNORM [Suspect]
     Indication: ANALGESIC THERAPY
     Dosage: 5-10 MG
     Route: 048
  8. ELEVIT [Concomitant]
     Indication: NUTRITIONAL SUPPLEMENTATION
     Dosage: X1
     Route: 048
  9. VITAMIN D [Concomitant]
     Indication: VITAMIN SUPPLEMENTATION
     Dosage: X1
     Route: 048

REACTIONS (4)
  - Respiratory distress [Recovered/Resolved]
  - Gestational diabetes [Recovered/Resolved]
  - Premature labour [Recovered/Resolved]
  - Exposure during pregnancy [Recovered/Resolved]
